FAERS Safety Report 8411368 (Version 2)
Quarter: 2013Q2

REPORT INFORMATION
  Report Type: Spontaneous
  Country: US (occurrence: None)
  Receive Date: 20111227
  Receipt Date: 20120703
  Transmission Date: 20140414
  Serious: No
  Sender: FDA-Public Use
  Company Number: PHEH2011US03094

PATIENT
  Age: 35 Year
  Sex: Female
  Weight: 102 kg

DRUGS (3)
  1. GILENYA [Suspect]
     Indication: MULTIPLE SCLEROSIS
     Route: 048
     Dates: start: 20110823
  2. VALTREX [Concomitant]
  3. ZYRTEC (CERITIZINE HYDROCHLORIDE) [Concomitant]

REACTIONS (6)
  - CHILLS [None]
  - PYREXIA [None]
  - OROPHARYNGEAL PAIN [None]
  - COUGH [None]
  - NASAL CONGESTION [None]
  - Oral herpes [None]
